FAERS Safety Report 6658686-7 (Version None)
Quarter: 2010Q1

REPORT INFORMATION
  Report Type: 
  Country: None (occurrence: None)
  Receive Date: 20100330
  Receipt Date: 20100318
  Transmission Date: 20100710
  Serious: Yes (Other)
  Sender: FDA-Public Use
  Company Number: PHEH2009US04913

PATIENT
  Sex: Male

DRUGS (2)
  1. GLEEVEC [Suspect]
     Indication: CHRONIC MYELOID LEUKAEMIA
     Dosage: 400MG DAILY
     Route: 048
     Dates: start: 20070101
  2. ARANESP [Concomitant]
     Indication: ANAEMIA

REACTIONS (8)
  - ANAEMIA [None]
  - BLOOD CREATININE INCREASED [None]
  - BLOOD POTASSIUM DECREASED [None]
  - BONE DENSITY DECREASED [None]
  - FATIGUE [None]
  - LABORATORY TEST ABNORMAL [None]
  - POOR QUALITY SLEEP [None]
  - RENAL DISORDER [None]
